FAERS Safety Report 8555581-3 (Version None)
Quarter: 2012Q3

REPORT INFORMATION
  Report Type: 
  Country: None (occurrence: None)
  Receive Date: 20120731
  Receipt Date: 20110726
  Transmission Date: 20120928
  Serious: No
  Sender: FDA-Public Use
  Company Number: US-ASTRAZENECA-2009UW00167

PATIENT
  Age: 44 Year
  Sex: Female
  Weight: 57.2 kg

DRUGS (10)
  1. VEETIDS [Concomitant]
     Dates: start: 20030108
  2. SEROQUEL [Suspect]
     Indication: BIPOLAR DISORDER
     Dosage: 200 MG AND UP
     Route: 048
     Dates: start: 19990101
  3. GEODON [Concomitant]
  4. WELLBUTRIN SR [Concomitant]
     Dates: start: 20030130
  5. TOPAMAX [Concomitant]
     Dates: start: 20030116
  6. TRIAMTERENE AND HYDROCHLOROTHIAZIDE [Concomitant]
     Dates: start: 20030218
  7. SEROQUEL [Suspect]
     Route: 048
     Dates: start: 20030116
  8. CELEXA [Concomitant]
     Dates: start: 20030116
  9. PRILOSEC [Concomitant]
     Dates: start: 20030701
  10. DOCUSATE SODIUM [Concomitant]
     Route: 048
     Dates: start: 20060620

REACTIONS (5)
  - TYPE 2 DIABETES MELLITUS [None]
  - DIABETES MELLITUS INADEQUATE CONTROL [None]
  - WEIGHT DECREASED [None]
  - OBESITY [None]
  - WEIGHT INCREASED [None]
